FAERS Safety Report 23942998 (Version 1)
Quarter: 2024Q2

REPORT INFORMATION
  Report Type: Spontaneous
  Country: US (occurrence: US)
  Receive Date: 20240605
  Receipt Date: 20240605
  Transmission Date: 20240715
  Serious: No
  Sender: FDA-Public Use
  Company Number: US-MYLANLABS-2024M1046153

PATIENT
  Sex: Female

DRUGS (2)
  1. EFFEXOR [Interacting]
     Active Substance: VENLAFAXINE HYDROCHLORIDE
     Indication: Product used for unknown indication
     Dosage: UNK
     Route: 065
  2. VELSIPITY [Concomitant]
     Active Substance: ETRASIMOD ARGININE
     Dosage: 2 MILLIGRAM
     Route: 065

REACTIONS (1)
  - Drug interaction [Unknown]
